FAERS Safety Report 9714100 (Version 1)
Quarter: 2013Q4

REPORT INFORMATION
  Report Type: Spontaneous
  Country: US (occurrence: US)
  Receive Date: 20131126
  Receipt Date: 20131126
  Transmission Date: 20140711
  Serious: No
  Sender: FDA-Public Use
  Company Number: US-GILEAD-2008-0018861

PATIENT
  Sex: Female

DRUGS (17)
  1. LETAIRIS [Suspect]
     Indication: PULMONARY ARTERIAL HYPERTENSION
     Route: 048
     Dates: start: 20080924, end: 20081104
  2. LIPITOR [Concomitant]
  3. CELEBREX [Concomitant]
  4. DETROL LA [Concomitant]
  5. ISOSORBIDE [Concomitant]
  6. METFORMIN [Concomitant]
  7. PLAVIX [Concomitant]
  8. AVAPRO [Concomitant]
  9. ALLOPURINOL [Concomitant]
  10. PREVACID [Concomitant]
  11. TOPROL XL [Concomitant]
  12. MECLIZINE [Concomitant]
  13. GLIPIZIDE [Concomitant]
  14. FUROSEMIDE [Concomitant]
  15. ASPIRIN [Concomitant]
  16. SYNTHROID [Concomitant]
  17. FOLIC ACID [Concomitant]

REACTIONS (1)
  - Oedema peripheral [Unknown]
